FAERS Safety Report 7824377-X (Version None)
Quarter: 2011Q4

REPORT INFORMATION
  Report Type: 
  Country: None (occurrence: None)
  Receive Date: 20111018
  Receipt Date: 20111018
  Transmission Date: 20120403
  Serious: Yes (Life-Threatening)
  Sender: FDA-Public Use
  Company Number: None

PATIENT
  Weight: 83.0083 kg

DRUGS (1)
  1. HALOPERIDOL [Suspect]
     Indication: STRESS
     Dosage: 2 MG TAB 1 DAILY HALOPERIDOL
     Dates: start: 19860101

REACTIONS (1)
  - TREMOR [None]
